FAERS Safety Report 21979689 (Version 7)
Quarter: 2023Q2

REPORT INFORMATION
  Report Type: Report from Study
  Country: GB (occurrence: None)
  Receive Date: 20230210
  Receipt Date: 20230406
  Transmission Date: 20230722
  Serious: Yes (Hospitalization)
  Sender: FDA-Public Use
  Company Number: GB-Eisai Medical Research-EC-2023-133623

PATIENT
  Age: 66 Year
  Sex: Male
  Weight: 104.8 kg

DRUGS (17)
  1. LENVATINIB [Suspect]
     Active Substance: LENVATINIB
     Indication: Squamous cell carcinoma of head and neck
     Route: 048
     Dates: start: 20221223, end: 20230201
  2. PEMBROLIZUMAB [Suspect]
     Active Substance: PEMBROLIZUMAB
     Indication: Squamous cell carcinoma of head and neck
     Route: 041
     Dates: start: 20221223, end: 20230112
  3. ISOSORBIDE MONONITRATE [Concomitant]
     Active Substance: ISOSORBIDE MONONITRATE
     Dates: start: 201001
  4. OMEPRAZOLE [Concomitant]
     Active Substance: OMEPRAZOLE
     Dates: start: 201001
  5. ATORVASTATIN [Concomitant]
     Active Substance: ATORVASTATIN
     Dates: start: 201001
  6. ASPIRIN [Concomitant]
     Active Substance: ASPIRIN
     Dates: start: 201001
  7. MIRTAZAPINE [Concomitant]
     Active Substance: MIRTAZAPINE
     Dates: start: 199001
  8. GABAPENTIN [Concomitant]
     Active Substance: GABAPENTIN
     Dates: start: 202112
  9. ACETAMINOPHEN [Concomitant]
     Active Substance: ACETAMINOPHEN
     Dates: start: 202101
  10. MORPHINE SULFATE [Concomitant]
     Active Substance: MORPHINE SULFATE
     Dates: start: 202101
  11. FENTANYL [Concomitant]
     Active Substance: FENTANYL
     Dates: start: 20221117
  12. METOCLOPRAMIDE [Concomitant]
     Active Substance: METOCLOPRAMIDE
     Dates: start: 202206
  13. CARBOCYSTEINE [Concomitant]
     Active Substance: CARBOCYSTEINE
     Dates: start: 202202
  14. BENZYDAMINE [Concomitant]
     Active Substance: BENZYDAMINE
     Dates: start: 202202
  15. CLONAZEPAM [Concomitant]
     Active Substance: CLONAZEPAM
     Dates: start: 20230104
  16. ETORICOXIB [Concomitant]
     Active Substance: ETORICOXIB
     Dates: start: 20230112
  17. PREGABALIN [Concomitant]
     Active Substance: PREGABALIN
     Dates: start: 20230112

REACTIONS (2)
  - Tumour haemorrhage [Recovered/Resolved]
  - Vascular device infection [Recovered/Resolved]

NARRATIVE: CASE EVENT DATE: 20230202
